FAERS Safety Report 5446891-7 (Version None)
Quarter: 2007Q3

REPORT INFORMATION
  Report Type: 
  Country: None (occurrence: None)
  Receive Date: 20070907
  Receipt Date: 20070827
  Transmission Date: 20080115
  Serious: Yes (Other)
  Sender: FDA-Public Use
  Company Number: US-PFIZER INC-2007073109

PATIENT
  Sex: Female
  Weight: 122.5 kg

DRUGS (7)
  1. CHANTIX [Suspect]
     Indication: SMOKING CESSATION THERAPY
  2. MOTRIN [Concomitant]
     Indication: ARTHRITIS
  3. VICODIN [Concomitant]
     Indication: ARTHRITIS
  4. LOVASTATIN [Concomitant]
     Indication: BLOOD CHOLESTEROL
  5. FLUOXETINE [Concomitant]
  6. ADVAIR DISKUS 100/50 [Concomitant]
  7. COMBIVENT [Concomitant]

REACTIONS (1)
  - ARTHRALGIA [None]
